FAERS Safety Report 9554166 (Version 1)
Quarter: 2013Q3

REPORT INFORMATION
  Report Type: Spontaneous
  Country: IT (occurrence: None)
  Receive Date: 20130814
  Receipt Date: 20130814
  Transmission Date: 20140515
  Serious: Yes (Other)
  Sender: FDA-Public Use
  Company Number: 2013-01075

PATIENT
  Age: 50 Year
  Sex: Male

DRUGS (5)
  1. ETHAMBUTOL [Suspect]
     Indication: TUBERCULOSIS
     Dosage: UNKNOWN (1200 MG, UNKNOWN), UNKNOWN
  2. RIFAMPICIN [Suspect]
     Indication: TUBERCULOSIS
     Dosage: UNKNOWN (600 MG, UNKNOWN), UNKNOWN
  3. ISONIAZID [Suspect]
     Indication: TUBERCULOSIS
     Dosage: UNKNOWN (600 MG, UNKNOWN) , UNKNOWN
  4. PYRAZINAMIDE [Suspect]
     Indication: TUBERCULOSIS
     Dosage: UNKNOWN , (1500 MG, UNKOWN) , UNKNOWN
  5. MOXIFLOXACIN [Suspect]
     Indication: TUBERCULOSIS

REACTIONS (3)
  - Renal failure acute [None]
  - Focal segmental glomerulosclerosis [None]
  - Tubulointerstitial nephritis [None]
